FAERS Safety Report 13189404 (Version 3)
Quarter: 2017Q1

REPORT INFORMATION
  Report Type: Spontaneous
  Country: JP (occurrence: JP)
  Receive Date: 20170206
  Receipt Date: 20170317
  Transmission Date: 20170428
  Serious: Yes (Death, Hospitalization, Disabling, Other)
  Sender: FDA-Public Use
  Company Number: JP-ASTRAZENECA-2016SF30359

PATIENT
  Age: 29023 Day
  Sex: Male
  Weight: 51 kg

DRUGS (22)
  1. CLEANAL [Concomitant]
     Active Substance: FUDOSTEINE
     Dates: start: 20161102, end: 20161202
  2. MEMANTINE HYDROCHLORIDE. [Concomitant]
     Active Substance: MEMANTINE HYDROCHLORIDE
     Dates: start: 20161118, end: 20161125
  3. SEROQUEL [Suspect]
     Active Substance: QUETIAPINE FUMARATE
     Indication: RESTLESSNESS
     Dosage: AS NEEDED
     Route: 048
     Dates: start: 20161202
  4. TSUMURA REDUCED LIVER POWDER [Concomitant]
     Dates: start: 20161115, end: 20161202
  5. MEROPENEM. [Concomitant]
     Active Substance: MEROPENEM
     Dates: start: 20161107, end: 20161202
  6. SEROQUEL [Suspect]
     Active Substance: QUETIAPINE FUMARATE
     Indication: RESTLESSNESS
     Route: 048
     Dates: start: 20161124, end: 20161124
  7. CARBOCISTEINE [Concomitant]
     Active Substance: CARBOCYSTEINE
     Dates: start: 20161027, end: 20161202
  8. RISPERDAL [Concomitant]
     Active Substance: RISPERIDONE
     Dosage: AS NEEDED
     Route: 048
     Dates: start: 20161122
  9. BIOFERMIN [Concomitant]
     Active Substance: BACILLUS SUBTILIS\LACTOBACILLUS ACIDOPHILUS\STREPTOCOCCUS FAECAIS
     Dates: start: 20161130, end: 20161202
  10. LANSOPRAZOLE. [Concomitant]
     Active Substance: LANSOPRAZOLE
     Dates: start: 20161028, end: 20161125
  11. CERCINE [Concomitant]
     Active Substance: DIAZEPAM
     Dates: start: 20161121, end: 20161123
  12. AMLODIPINE [Concomitant]
     Active Substance: AMLODIPINE BESYLATE
     Dates: start: 20161109, end: 20161202
  13. SEROQUEL [Suspect]
     Active Substance: QUETIAPINE FUMARATE
     Indication: RESTLESSNESS
     Route: 048
     Dates: start: 20161122, end: 20161123
  14. SEROQUEL [Suspect]
     Active Substance: QUETIAPINE FUMARATE
     Indication: RESTLESSNESS
     Route: 048
     Dates: start: 20161125, end: 20161201
  15. BISOLVON [Concomitant]
     Active Substance: BROMHEXINE HYDROCHLORIDE
     Dates: start: 20161027, end: 20161202
  16. IMIDAPRIL HYDROCHLORIDE [Concomitant]
     Active Substance: IMIDAPRIL HYDROCHLORIDE
     Dosage: 5.0MG UNKNOWN
     Dates: start: 20161111, end: 20161202
  17. URIEF [Concomitant]
     Active Substance: SILODOSIN
     Dates: start: 20161130, end: 20161202
  18. SERENACE [Concomitant]
     Active Substance: HALOPERIDOL
     Dates: start: 20161121, end: 20161121
  19. RISPERDAL [Concomitant]
     Active Substance: RISPERIDONE
     Route: 048
     Dates: start: 20161115, end: 20161117
  20. ROZEREM [Concomitant]
     Active Substance: RAMELTEON
     Dosage: 8.0MG UNKNOWN
     Dates: start: 20161115, end: 20161201
  21. MIYA-BM [Concomitant]
     Active Substance: CLOSTRIDIUM BUTYRICUM SPORES STRAIN M-55
     Dosage: 15.0MG UNKNOWN
     Dates: start: 20161028, end: 20161202
  22. CHINESE TRADITIONAL MEDICINE NOS [Concomitant]
     Dates: start: 20161111, end: 20161118

REACTIONS (3)
  - Pneumonia bacterial [Fatal]
  - Dysphagia [Unknown]
  - Intentional product use issue [Unknown]

NARRATIVE: CASE EVENT DATE: 20161129
